FAERS Safety Report 23852932 (Version 1)
Quarter: 2024Q2

REPORT INFORMATION
  Report Type: Spontaneous
  Country: CA (occurrence: CA)
  Receive Date: 20240514
  Receipt Date: 20240514
  Transmission Date: 20240716
  Serious: Yes (Other)
  Sender: FDA-Public Use
  Company Number: CA-PFIZER INC-202400106502

PATIENT
  Age: 67 Year

DRUGS (2)
  1. BACTERIOSTATIC SODIUM CHLORIDE [Suspect]
     Active Substance: SODIUM CHLORIDE
     Dosage: 30 ML
  2. GADOBUTROL [Suspect]
     Active Substance: GADOBUTROL
     Dosage: UNK

REACTIONS (2)
  - Drug eruption [Not Recovered/Not Resolved]
  - Incorrect route of product administration [Not Recovered/Not Resolved]
